FAERS Safety Report 4532077-7 (Version None)
Quarter: 2004Q4

REPORT INFORMATION
  Report Type: 
  Country: None (occurrence: None)
  Receive Date: 20041217
  Receipt Date: 20041202
  Transmission Date: 20050328
  Serious: No
  Sender: FDA-Public Use
  Company Number: 2004UW24821

PATIENT
  Sex: Male

DRUGS (1)
  1. SEROQUEL [Suspect]
     Dosage: 300-400 MG DAILY
     Dates: start: 20010101

REACTIONS (1)
  - LIVER FUNCTION TEST ABNORMAL [None]
